FAERS Safety Report 20807276 (Version 3)
Quarter: 2022Q3

REPORT INFORMATION
  Report Type: Spontaneous
  Country: US (occurrence: US)
  Receive Date: 20220510
  Receipt Date: 20220816
  Transmission Date: 20221027
  Serious: No
  Sender: FDA-Public Use
  Company Number: US-GLAXOSMITHKLINE-US2022074862

PATIENT
  Sex: Female

DRUGS (2)
  1. ZEJULA [Suspect]
     Active Substance: NIRAPARIB
     Indication: Ovarian cancer
     Dosage: 200 MG, QD (QAM)
     Dates: start: 20220427
  2. ZEJULA [Suspect]
     Active Substance: NIRAPARIB
     Dosage: 200 MG, QD

REACTIONS (6)
  - Anaemia [Unknown]
  - Platelet count decreased [Not Recovered/Not Resolved]
  - Blood uric acid increased [Unknown]
  - Dizziness [Unknown]
  - Nausea [Unknown]
  - Macrocytosis [Unknown]
